FAERS Safety Report 5811458-5 (Version None)
Quarter: 2008Q3

REPORT INFORMATION
  Report Type: 
  Country: None (occurrence: None)
  Receive Date: 20080714
  Receipt Date: 20080714
  Transmission Date: 20090109
  Serious: No
  Sender: FDA-Public Use
  Company Number: None

PATIENT
  Sex: Female
  Weight: 58.9676 kg

DRUGS (2)
  1. TRI-NORINYL 21-DAY [Suspect]
     Indication: DYSMENORRHOEA
  2. TRI-NORINYL 21-DAY [Suspect]
     Indication: MENSTRUATION IRREGULAR

REACTIONS (2)
  - MALAISE [None]
  - PHARMACEUTICAL PRODUCT COMPLAINT [None]
